FAERS Safety Report 7677342-X (Version None)
Quarter: 2011Q3

REPORT INFORMATION
  Report Type: 
  Country: None (occurrence: None)
  Receive Date: 20110810
  Receipt Date: 20110810
  Transmission Date: 20111222
  Serious: Yes (Other)
  Sender: FDA-Public Use
  Company Number: None

PATIENT
  Sex: Female
  Weight: 56 kg

DRUGS (4)
  1. DOXIL [Suspect]
     Indication: BREAST CANCER METASTATIC
     Dosage: 45MG/M2 IV Q. 4 WEEKS
     Route: 042
     Dates: start: 20061229, end: 20070105
  2. LEXAPRO [Concomitant]
  3. LAPATINIB [Suspect]
     Indication: BREAST CANCER METASTATIC
     Dosage: 1500MG P.O. QD
     Route: 048
     Dates: start: 20061229, end: 20070105
  4. MULTI-VITAMIN [Concomitant]

REACTIONS (6)
  - FATIGUE [None]
  - PERFORMANCE STATUS DECREASED [None]
  - DECREASED APPETITE [None]
  - BLOOD CALCIUM ABNORMAL [None]
  - DIARRHOEA [None]
  - GINGIVAL BLEEDING [None]
